FAERS Safety Report 7626929-9 (Version None)
Quarter: 2011Q3

REPORT INFORMATION
  Report Type: 
  Country: None (occurrence: None)
  Receive Date: 20110721
  Receipt Date: 20110712
  Transmission Date: 20111222
  Serious: Yes (Other)
  Sender: FDA-Public Use
  Company Number: CA-ASTRAZENECA-2011SE19582

PATIENT
  Age: 59 Year
  Sex: Male

DRUGS (1)
  1. CRESTOR [Suspect]
     Indication: C-REACTIVE PROTEIN ABNORMAL
     Route: 048

REACTIONS (4)
  - MYALGIA [None]
  - BLOOD CREATINE PHOSPHOKINASE INCREASED [None]
  - EXOSTOSIS [None]
  - ARTHROPATHY [None]
